FAERS Safety Report 6229270-4 (Version None)
Quarter: 2009Q2

REPORT INFORMATION
  Report Type: 
  Country: None (occurrence: None)
  Receive Date: 20090615
  Receipt Date: 20090514
  Transmission Date: 20091009
  Serious: No
  Sender: FDA-Public Use
  Company Number: US-BAYER-200920966NA

PATIENT
  Age: 22 Year
  Sex: Female

DRUGS (1)
  1. AVELOX [Suspect]
     Indication: RESPIRATORY DISORDER
     Dates: start: 20090501

REACTIONS (4)
  - ANXIETY [None]
  - BURNING SENSATION [None]
  - DIZZINESS [None]
  - PARAESTHESIA [None]
